FAERS Safety Report 23599209 (Version 1)
Quarter: 2024Q1

REPORT INFORMATION
  Report Type: Spontaneous
  Country: GB (occurrence: GB)
  Receive Date: 20240306
  Receipt Date: 20240306
  Transmission Date: 20240410
  Serious: Yes (Hospitalization)
  Sender: FDA-Public Use
  Company Number: None

PATIENT
  Age: 57 Year
  Sex: Male
  Weight: 98 kg

DRUGS (4)
  1. CAPECITABINE [Suspect]
     Active Substance: CAPECITABINE
     Indication: Colorectal cancer
     Dosage: 2150MG TWICE A DAY;
     Dates: start: 20231214, end: 20231219
  2. COCODAMOL [Concomitant]
     Active Substance: ACETAMINOPHEN\CODEINE PHOSPHATE
     Indication: Analgesic therapy
     Dates: start: 20231122
  3. LANSOPRAZOLE [Concomitant]
     Active Substance: LANSOPRAZOLE
     Indication: Dyspepsia
     Dates: start: 20231122
  4. MEBEVERINE [Concomitant]
     Active Substance: MEBEVERINE
     Indication: Abdominal pain upper
     Dates: start: 20231122, end: 20231214

REACTIONS (1)
  - Cardiospasm [Recovered/Resolved]

NARRATIVE: CASE EVENT DATE: 20231219
